FAERS Safety Report 7668626-X (Version None)
Quarter: 2011Q3

REPORT INFORMATION
  Report Type: 
  Country: None (occurrence: None)
  Receive Date: 20110808
  Receipt Date: 20110808
  Transmission Date: 20111222
  Serious: Yes (Life-Threatening, Other)
  Sender: FDA-Public Use
  Company Number: None

PATIENT
  Age: 7 Year
  Sex: Female
  Weight: 18.143 kg

DRUGS (2)
  1. CEFDINIR [Suspect]
     Indication: MULTIPLE ALLERGIES
     Dosage: 1 TSP
     Route: 048
     Dates: start: 20110719, end: 20110804
  2. CEFDINIR [Suspect]
     Indication: PROPHYLAXIS
     Dosage: 1 TSP
     Route: 048
     Dates: start: 20110719, end: 20110804

REACTIONS (6)
  - AGGRESSION [None]
  - AGITATION [None]
  - IRRITABILITY [None]
  - FAECES DISCOLOURED [None]
  - SCRATCH [None]
  - SELF INJURIOUS BEHAVIOUR [None]
